FAERS Safety Report 12162707 (Version 1)
Quarter: 2016Q1

REPORT INFORMATION
  Report Type: Spontaneous
  Country: FR (occurrence: FR)
  Receive Date: 20160309
  Receipt Date: 20160309
  Transmission Date: 20160526
  Serious: Yes (Hospitalization)
  Sender: FDA-Public Use
  Company Number: FR-PFIZER INC-2016131912

PATIENT
  Age: 58 Year
  Sex: Female

DRUGS (2)
  1. PYOSTACINE [Concomitant]
     Active Substance: PRISTINAMYCIN
     Indication: ERYSIPELAS
     Dosage: UNK
     Dates: start: 20160123, end: 20160125
  2. ZYVOXID [Suspect]
     Active Substance: LINEZOLID
     Indication: ERYSIPELAS
     Dosage: 600 MG, 2X/DAY
     Dates: start: 20160125, end: 20160126

REACTIONS (2)
  - Rash morbilliform [Recovered/Resolved]
  - Rash [Recovered/Resolved]

NARRATIVE: CASE EVENT DATE: 20160126
